APPROVED DRUG PRODUCT: HYDRALAZINE HYDROCHLORIDE
Active Ingredient: HYDRALAZINE HYDROCHLORIDE
Strength: 25MG
Dosage Form/Route: TABLET;ORAL
Application: A086961 | Product #002
Applicant: STRIDES PHARMA INTERNATIONAL AG
Approved: Approved Prior to Jan 1, 1982 | RLD: No | RS: No | Type: DISCN